FAERS Safety Report 16134188 (Version 2)
Quarter: 2019Q3

REPORT INFORMATION
  Report Type: Spontaneous
  Country: JP (occurrence: JP)
  Receive Date: 20190329
  Receipt Date: 20190722
  Transmission Date: 20191004
  Serious: Yes (Death, Hospitalization, Other)
  Sender: FDA-Public Use
  Company Number: JP-MYLANLABS-2019M1027978

PATIENT
  Age: 2 Decade
  Sex: Male

DRUGS (17)
  1. CARBOPLATIN. [Suspect]
     Active Substance: CARBOPLATIN
     Dosage: RESTATED AT A REDUCED DOSE
     Route: 065
  2. TRAMETINIB [Suspect]
     Active Substance: TRAMETINIB
     Dosage: 2 MILLIGRAM, QD
     Route: 048
  3. CARBOPLATIN. [Suspect]
     Active Substance: CARBOPLATIN
     Indication: ROSAI-DORFMAN SYNDROME
     Dosage: UNK
     Route: 065
  4. PREDNISOLONE TABLETS 5MG ^PFIZER^ [Suspect]
     Active Substance: PREDNISOLONE
     Dosage: RESTARTED AT AN ESCALATED DOSE
     Route: 065
  5. CLADRIBINE. [Suspect]
     Active Substance: CLADRIBINE
     Indication: ROSAI-DORFMAN SYNDROME
     Dosage: SIX CYCLES
     Route: 065
  6. IFOSFAMIDE. [Suspect]
     Active Substance: IFOSFAMIDE
     Indication: ROSAI-DORFMAN SYNDROME
     Dosage: UNK
     Route: 065
  7. IFOSFAMIDE. [Suspect]
     Active Substance: IFOSFAMIDE
     Dosage: RECEIVED FOR TWO CYCLES
     Route: 065
  8. ETOPOSIDE. [Suspect]
     Active Substance: ETOPOSIDE
     Dosage: RESTATED AT A REDUCED DOSE
     Route: 065
  9. CARBOPLATIN. [Suspect]
     Active Substance: CARBOPLATIN
     Dosage: RECEIVED FOR TWO CYCLES
     Route: 065
  10. TRAMETINIB [Suspect]
     Active Substance: TRAMETINIB
     Indication: HISTIOCYTIC SARCOMA
     Dosage: 2 MILLIGRAM, QD
     Route: 048
  11. PREDNISOLONE TABLETS 5MG ^PFIZER^ [Suspect]
     Active Substance: PREDNISOLONE
     Indication: ROSAI-DORFMAN SYNDROME
     Dosage: DOSE ESCALATION
     Route: 065
  12. ETOPOSIDE. [Suspect]
     Active Substance: ETOPOSIDE
     Indication: ROSAI-DORFMAN SYNDROME
     Dosage: UNK
     Route: 065
  13. ETOPOSIDE. [Suspect]
     Active Substance: ETOPOSIDE
     Dosage: RECEIVED FOR TWO CYCLES
     Route: 065
  14. PREDNISOLONE TABLETS 5MG ^PFIZER^ [Suspect]
     Active Substance: PREDNISOLONE
     Dosage: DOSE REDUCED
     Route: 065
  15. PREDNISOLONE TABLETS 5MG ^PFIZER^ [Suspect]
     Active Substance: PREDNISOLONE
     Dosage: DOSE WAS AGAIN REDUCED
     Route: 065
  16. IFOSFAMIDE. [Suspect]
     Active Substance: IFOSFAMIDE
     Dosage: RESTATED AT A REDUCED DOSE
     Route: 065
  17. TRAMETINIB [Suspect]
     Active Substance: TRAMETINIB
     Indication: ROSAI-DORFMAN SYNDROME
     Dosage: 0.5 MILLIGRAM
     Route: 048

REACTIONS (12)
  - Vitreous haemorrhage [Unknown]
  - Pancreatic enzymes increased [Unknown]
  - Tumour haemorrhage [Unknown]
  - Sepsis [Unknown]
  - Pneumonia [Unknown]
  - Gastrointestinal haemorrhage [Unknown]
  - Small intestinal perforation [Fatal]
  - Pneumatosis intestinalis [Unknown]
  - Pneumoperitoneum [Unknown]
  - Pneumomediastinum [Unknown]
  - Nocardiosis [Unknown]
  - Device related infection [Unknown]
